FAERS Safety Report 23379478 (Version 1)
Quarter: 2024Q1

REPORT INFORMATION
  Report Type: Spontaneous
  Country: MX (occurrence: MX)
  Receive Date: 20240108
  Receipt Date: 20240108
  Transmission Date: 20240410
  Serious: Yes (Other)
  Sender: FDA-Public Use
  Company Number: MX-BAYER-2024A002913

PATIENT
  Age: 37 Year
  Sex: Male

DRUGS (1)
  1. LAROTRECTINIB [Suspect]
     Active Substance: LAROTRECTINIB
     Indication: Sarcoma
     Dosage: 100 MG, BID
     Route: 048
     Dates: start: 20221204

REACTIONS (1)
  - Sarcoma [None]

NARRATIVE: CASE EVENT DATE: 20231201
